FAERS Safety Report 12902102 (Version 2)
Quarter: 2016Q4

REPORT INFORMATION
  Report Type: Report from Study
  Country: US (occurrence: US)
  Receive Date: 20161102
  Receipt Date: 20161212
  Transmission Date: 20170207
  Serious: Yes (Other)
  Sender: FDA-Public Use
  Company Number: US-AMGEN-USASL2016150695

PATIENT
  Age: 57 Year
  Sex: Female

DRUGS (2)
  1. ENBREL [Suspect]
     Active Substance: ETANERCEPT
     Dosage: 50 MG, UNK
     Route: 065
     Dates: start: 2016
  2. ENBREL [Suspect]
     Active Substance: ETANERCEPT
     Indication: RHEUMATOID ARTHRITIS
     Dosage: 50 MG, UNK
     Route: 065
     Dates: end: 201609

REACTIONS (13)
  - Constipation [Unknown]
  - Ear discomfort [Unknown]
  - Blood pressure fluctuation [Unknown]
  - Back pain [Unknown]
  - Epistaxis [Recovered/Resolved]
  - Decreased appetite [Not Recovered/Not Resolved]
  - Arthropathy [Unknown]
  - Arthralgia [Unknown]
  - Knee arthroplasty [Unknown]
  - Weight decreased [Not Recovered/Not Resolved]
  - Urinary incontinence [Unknown]
  - Tinnitus [Unknown]
  - Neck pain [Unknown]

NARRATIVE: CASE EVENT DATE: 201610
